FAERS Safety Report 21360204 (Version 3)
Quarter: 2022Q4

REPORT INFORMATION
  Report Type: Spontaneous
  Country: US (occurrence: US)
  Receive Date: 20220921
  Receipt Date: 20221111
  Transmission Date: 20230112
  Serious: No
  Sender: FDA-Public Use
  Company Number: US-PFIZER INC-PV202200067089

PATIENT
  Age: 68 Year
  Sex: Female

DRUGS (1)
  1. ALTACE [Suspect]
     Active Substance: RAMIPRIL
     Dosage: UNK

REACTIONS (4)
  - Drug ineffective [Unknown]
  - Heart rate abnormal [Unknown]
  - Blood pressure abnormal [Unknown]
  - Reaction to excipient [Unknown]
